FAERS Safety Report 5145831-8 (Version None)
Quarter: 2006Q4

REPORT INFORMATION
  Report Type: 
  Country: None (occurrence: None)
  Receive Date: 20061108
  Receipt Date: 20061027
  Transmission Date: 20070319
  Serious: Yes (Other)
  Sender: FDA-Public Use
  Company Number: US-JNJFOC-20061100018

PATIENT
  Sex: Male
  Weight: 65.77 kg

DRUGS (8)
  1. DURAGESIC-100 [Suspect]
     Indication: BACK PAIN
     Route: 062
  2. FENTANYL TRANSDERMAL SYSTEM [Suspect]
     Indication: BACK PAIN
     Route: 062
  3. DEXEDRINE [Concomitant]
     Indication: ATTENTION DEFICIT/HYPERACTIVITY DISORDER
     Route: 048
  4. SEROQUEL [Concomitant]
     Indication: SLEEP DISORDER
     Route: 048
  5. CLONAZEPAM [Concomitant]
     Indication: PANIC ATTACK
     Route: 048
  6. CLINORIL [Concomitant]
     Indication: ANTIINFLAMMATORY THERAPY
     Route: 048
  7. MORPHINE [Concomitant]
     Indication: BREAKTHROUGH PAIN
     Route: 065
  8. AMBIEN CR [Concomitant]
     Indication: SLEEP DISORDER
     Route: 048

REACTIONS (2)
  - CEREBROVASCULAR ACCIDENT [None]
  - DRUG INEFFECTIVE [None]
